FAERS Safety Report 11807124 (Version 1)
Quarter: 2015Q4

REPORT INFORMATION
  Report Type: Spontaneous
  Country: FR (occurrence: FR)
  Receive Date: 20151207
  Receipt Date: 20151207
  Transmission Date: 20160305
  Serious: Yes (Hospitalization)
  Sender: FDA-Public Use
  Company Number: FR-B. BRAUN MEDICAL INC.-1045121

PATIENT
  Age: 48 Year
  Sex: Female
  Weight: 43 kg

DRUGS (11)
  1. INEXIUM [Concomitant]
     Active Substance: ESOMEPRAZOLE
  2. PARACETAMOL [Concomitant]
     Active Substance: ACETAMINOPHEN
     Route: 042
  3. LEXOMIL [Concomitant]
     Active Substance: BROMAZEPAM
  4. LEVOTHYROXINE. [Concomitant]
     Active Substance: LEVOTHYROXINE
  5. EFFEXOR [Concomitant]
     Active Substance: VENLAFAXINE HYDROCHLORIDE
  6. CEFTRIAXONE. [Concomitant]
     Active Substance: CEFTRIAXONE
  7. AUGMENTIN [Concomitant]
     Active Substance: AMOXICILLIN\CLAVULANATE POTASSIUM
  8. PIPERACILLIN, TAZOBACTAM [Concomitant]
     Active Substance: PIPERACILLIN SODIUM\TAZOBACTAM SODIUM
  9. VANCOMYCIN [Concomitant]
     Active Substance: VANCOMYCIN
  10. METRONIDAZOLE. [Suspect]
     Active Substance: METRONIDAZOLE
     Dates: start: 20150925, end: 20151025
  11. TRAMADOL. [Concomitant]
     Active Substance: TRAMADOL

REACTIONS (4)
  - Rash erythematous [None]
  - Drug reaction with eosinophilia and systemic symptoms [None]
  - Face oedema [None]
  - Blister [None]

NARRATIVE: CASE EVENT DATE: 20151024
